FAERS Safety Report 4821837-0 (Version None)
Quarter: 2005Q4

REPORT INFORMATION
  Report Type: 
  Country: None (occurrence: None)
  Receive Date: 20051103
  Receipt Date: 20051026
  Transmission Date: 20060501
  Serious: Yes (Hospitalization)
  Sender: FDA-Public Use
  Company Number: 200510177BCA

PATIENT
  Age: 63 Year
  Sex: Male
  Weight: 70 kg

DRUGS (3)
  1. GAMUNEX [Suspect]
     Indication: DEMYELINATING POLYNEUROPATHY
     Dosage: 70 G, TOTAL DAILY, INTRAVENOUS
     Route: 042
     Dates: start: 20050321, end: 20050322
  2. GAMUNEX [Suspect]
     Indication: DEMYELINATING POLYNEUROPATHY
     Dosage: 70 G, TOTAL DAILY, INTRAVENOUS
     Route: 042
     Dates: start: 20050321, end: 20050322
  3. DILANTIN [Concomitant]

REACTIONS (3)
  - BACK PAIN [None]
  - HAEMOLYSIS [None]
  - URINARY TRACT INFECTION [None]
